FAERS Safety Report 17604047 (Version 2)
Quarter: 2020Q2

REPORT INFORMATION
  Report Type: Report from Study
  Country: US (occurrence: US)
  Receive Date: 20200331
  Receipt Date: 20200407
  Transmission Date: 20200713
  Serious: Yes (Hospitalization, Other)
  Sender: FDA-Public Use
  Company Number: US-AMGEN-USASL2020049891

PATIENT
  Age: 86 Year
  Sex: Male

DRUGS (14)
  1. SERTRALINE [Concomitant]
     Active Substance: SERTRALINE HYDROCHLORIDE
     Dosage: 100 MILLIGRAM, QD NIGHTLY
  2. SODIUM BICARBONATE. [Concomitant]
     Active Substance: SODIUM BICARBONATE
     Dosage: 1300 MILLIGRAM, QD
  3. VITAMIN C [Concomitant]
     Active Substance: ASCORBIC ACID
     Dosage: UNK
  4. XGEVA [Suspect]
     Active Substance: DENOSUMAB
     Indication: PROPHYLAXIS
     Dosage: UNK
     Route: 065
     Dates: start: 20200311
  5. ASPIRIN [ACETYLSALICYLIC ACID] [Concomitant]
     Active Substance: ASPIRIN
     Dosage: 81 MILLIGRAM, QD (EVERY NIGHT)
  6. GLIMEPIRIDE. [Concomitant]
     Active Substance: GLIMEPIRIDE
     Dosage: 1 MILLIGRAM, QD
  7. REPAGLINIDE. [Concomitant]
     Active Substance: REPAGLINIDE
     Dosage: 1 MILLIGRAM, IN MORNING ONLY WITH MEALS
  8. GALANTAMINE [GALANTAMINE HYDROBROMIDE] [Concomitant]
     Dosage: 4 MILLIGRAM, BID
  9. REPAGLINIDE. [Concomitant]
     Active Substance: REPAGLINIDE
     Dosage: 1 MILLIGRAM, AT NIGHT ONLY WITH MEALS
  10. VITAMIN B [Concomitant]
     Active Substance: VITAMIN B
     Dosage: UNK
     Dates: start: 202003
  11. AMLODIPINE [Concomitant]
     Active Substance: AMLODIPINE BESYLATE
     Dosage: UNK
  12. BYSTOLIC [Concomitant]
     Active Substance: NEBIVOLOL HYDROCHLORIDE
     Dosage: 5 MILLIGRAM, QD
  13. LOSARTAN. [Concomitant]
     Active Substance: LOSARTAN
     Dosage: 50 MILLIGRAM
     Dates: start: 20200220
  14. MYRBETRIQ [Concomitant]
     Active Substance: MIRABEGRON
     Dosage: UNK UNK, QD

REACTIONS (17)
  - Blood potassium increased [Unknown]
  - Hypocalcaemia [Unknown]
  - Hallucination [Unknown]
  - Asthenia [Unknown]
  - Blood magnesium decreased [Unknown]
  - Neuropathy peripheral [Unknown]
  - Dysstasia [Unknown]
  - Flushing [Unknown]
  - Back pain [Unknown]
  - Lethargy [Unknown]
  - Nasopharyngitis [Unknown]
  - Diarrhoea [Unknown]
  - Arthralgia [Unknown]
  - Renal failure [Unknown]
  - Pleural effusion [Not Recovered/Not Resolved]
  - Confusional state [Unknown]
  - Amnesia [Unknown]

NARRATIVE: CASE EVENT DATE: 202003
